FAERS Safety Report 12656548 (Version 2)
Quarter: 2016Q4

REPORT INFORMATION
  Report Type: Report from Study
  Country: BR (occurrence: BR)
  Receive Date: 20160816
  Receipt Date: 20161128
  Transmission Date: 20170207
  Serious: Yes (Hospitalization, Other)
  Sender: FDA-Public Use
  Company Number: PHHY2016BR098912

PATIENT
  Age: 39 Year
  Sex: Female
  Weight: 44.3 kg

DRUGS (4)
  1. EXJADE [Suspect]
     Active Substance: DEFERASIROX
     Indication: BONE MARROW FAILURE
     Dosage: 4 DF (2000 MG) (40 MG/KG), QD
     Route: 048
     Dates: start: 2014
  2. THYMOGLOBULIN [Concomitant]
     Active Substance: LAPINE T-LYMPHOCYTE IMMUNE GLOBULIN
     Indication: PRODUCT USED FOR UNKNOWN INDICATION
     Route: 065
  3. REVOLADE [Concomitant]
     Active Substance: ELTROMBOPAG
     Indication: PRODUCT USED FOR UNKNOWN INDICATION
     Route: 065
  4. EXJADE [Suspect]
     Active Substance: DEFERASIROX
     Indication: MYELODYSPLASTIC SYNDROME
     Dosage: 4 DF (2000 MG) (40 MG/KG), QD
     Route: 048
     Dates: end: 2012

REACTIONS (8)
  - Haemoglobin decreased [Unknown]
  - Asthenia [Unknown]
  - Toothache [Unknown]
  - Haematemesis [Unknown]
  - Platelet count decreased [Unknown]
  - Serum ferritin increased [Recovering/Resolving]
  - Malaise [Unknown]
  - Tooth disorder [Unknown]

NARRATIVE: CASE EVENT DATE: 201605
